FAERS Safety Report 22013422 (Version 1)
Quarter: 2023Q1

REPORT INFORMATION
  Report Type: Spontaneous
  Country: JP (occurrence: JP)
  Receive Date: 20230220
  Receipt Date: 20230220
  Transmission Date: 20230418
  Serious: Yes (Other)
  Sender: FDA-Public Use
  Company Number: JP-002147023-NVSJ2023JP002933

PATIENT
  Sex: Male

DRUGS (1)
  1. GLYCOPYRROLATE\INDACATEROL\MOMETASONE FUROATE [Suspect]
     Active Substance: GLYCOPYRROLATE\INDACATEROL\MOMETASONE FUROATE
     Indication: Asthma
     Dosage: 1 DF: INDACATEROL ACETATE 173 UG, GLYCOPYRRONIUM BROMIDE 63 UG, MOMETASONE FUROATE 160 UG

REACTIONS (3)
  - Arrhythmia [Unknown]
  - Bone density decreased [Unknown]
  - Dysphonia [Unknown]
